FAERS Safety Report 17027427 (Version 1)
Quarter: 2019Q4

REPORT INFORMATION
  Report Type: Spontaneous
  Country: CH (occurrence: CH)
  Receive Date: 20191113
  Receipt Date: 20191113
  Transmission Date: 20200122
  Serious: Yes (Other)
  Sender: FDA-Public Use
  Company Number: CH-AMGEN-CHESP2019183909

PATIENT
  Age: 21 Year
  Sex: Male

DRUGS (12)
  1. ISAVUCONAZOLE [Concomitant]
     Active Substance: ISAVUCONAZOLE
     Dosage: 200 MILLIGRAM, QD
     Route: 048
  2. TACROLIMUS. [Concomitant]
     Active Substance: TACROLIMUS
     Dosage: 1.5 MILLIGRAM, QD
     Route: 048
     Dates: start: 201907
  3. URSOFALK [Concomitant]
     Active Substance: URSODIOL
     Dosage: 250 MILLIGRAM, TID
     Route: 048
  4. PREDNISON [Concomitant]
     Active Substance: PREDNISONE
     Dosage: 10 MILLIGRAM, QD
     Route: 048
  5. CALCIUM VITAMIN D3 [Concomitant]
     Dosage: 1 DOSAGE FORM, QD
     Route: 048
  6. TRAMADOL [TRAMADOL HYDROCHLORIDE] [Concomitant]
     Active Substance: TRAMADOL HYDROCHLORIDE
     Dosage: 100 MILLIGRAM, BID
     Route: 048
  7. VALTREX [Concomitant]
     Active Substance: VALACYCLOVIR HYDROCHLORIDE
     Dosage: 500 MILLIGRAM, BID
     Route: 048
  8. NEULASTA [Suspect]
     Active Substance: PEGFILGRASTIM
     Indication: NEUTROPENIA
     Dosage: 6 MILLIGRAM, QWK
     Route: 058
     Dates: start: 201906
  9. FLUCLOXACILLIN [FLUCLOXACILLIN MAGNESIUM] [Concomitant]
     Dosage: 12 GRAM, QD
     Route: 041
     Dates: start: 20190825
  10. OSPEN [PHENOXYMETHYLPENICILLIN BENZATHINE] [Concomitant]
     Dosage: 1000000 INTERNATIONAL UNIT, QD
     Route: 048
  11. BACTRIM [Concomitant]
     Active Substance: SULFAMETHOXAZOLE\TRIMETHOPRIM
     Dosage: 1 DOSAGE FORM, Q3WK
     Route: 048
  12. CALCIUM FOLINATE [Concomitant]
     Active Substance: LEUCOVORIN CALCIUM
     Dosage: 15 MILLIGRAM, 4 TIMES/WK
     Route: 048

REACTIONS (2)
  - Thrombocytopenia [Not Recovered/Not Resolved]
  - Pulmonary haemorrhage [Not Recovered/Not Resolved]

NARRATIVE: CASE EVENT DATE: 201808
